FAERS Safety Report 7430589-X (Version None)
Quarter: 2011Q2

REPORT INFORMATION
  Report Type: 
  Country: None (occurrence: None)
  Receive Date: 20110421
  Receipt Date: 20100824
  Transmission Date: 20111010
  Serious: No
  Sender: FDA-Public Use
  Company Number: US-ASTRAZENECA-2010SE39826

PATIENT
  Age: 58 Year

DRUGS (4)
  1. HUMIRA [Suspect]
     Indication: CROHN'S DISEASE
     Dosage: 40 MG/0.8 ML PEN (40 MILLIGRAMS)
     Route: 058
     Dates: start: 20080318, end: 20100706
  2. MULTIPLE UNKNOWN SUPPLEMENTS [Suspect]
     Route: 065
  3. METOPROLOL SUCCINATE [Suspect]
     Route: 048
  4. MESALAZINE [Concomitant]

REACTIONS (2)
  - OCULAR ICTERUS [None]
  - HEPATIC ENZYME INCREASED [None]
